FAERS Safety Report 4364380-8 (Version None)
Quarter: 2004Q2

REPORT INFORMATION
  Report Type: 
  Country: None (occurrence: None)
  Receive Date: 20040513
  Receipt Date: 20031111
  Transmission Date: 20050107
  Serious: Yes (Other)
  Sender: FDA-Public Use
  Company Number: 2003185647US

PATIENT
  Sex: Female

DRUGS (3)
  1. PROVERA [Suspect]
     Indication: HORMONE REPLACEMENT THERAPY
     Dosage: ORAL
     Route: 048
     Dates: start: 19850101, end: 19971201
  2. PREMARIN [Suspect]
     Indication: HORMONE REPLACEMENT THERAPY
     Dosage: ORAL
     Route: 048
     Dates: start: 19850101, end: 19971201
  3. PREMPRO [Suspect]
     Indication: HORMONE REPLACEMENT THERAPY
     Dosage: ORAL
     Route: 048
     Dates: start: 19850101, end: 19971201

REACTIONS (1)
  - PULMONARY EMBOLISM [None]
